FAERS Safety Report 13499230 (Version 1)
Quarter: 2017Q2

REPORT INFORMATION
  Report Type: Spontaneous
  Country: US (occurrence: US)
  Receive Date: 20170501
  Receipt Date: 20170501
  Transmission Date: 20170830
  Serious: No
  Sender: FDA-Public Use
  Company Number: US-GLAXOSMITHKLINE-US2017061076

PATIENT
  Age: 38 Year
  Sex: Female

DRUGS (2)
  1. CHLORPHENAMINE TABLET [Concomitant]
     Indication: PRODUCT USED FOR UNKNOWN INDICATION
     Dosage: UNK
  2. FLONASE SENSIMIST ALLERGY RELIEF [Suspect]
     Active Substance: FLUTICASONE FUROATE
     Indication: HYPERSENSITIVITY
     Dosage: UNK, BID
     Dates: start: 20170424, end: 20170425

REACTIONS (3)
  - Inappropriate schedule of drug administration [Unknown]
  - Epistaxis [Recovered/Resolved]
  - Mucosal dryness [Unknown]

NARRATIVE: CASE EVENT DATE: 20170424
